FAERS Safety Report 5857338-0 (Version None)
Quarter: 2008Q3

REPORT INFORMATION
  Report Type: 
  Country: None (occurrence: None)
  Receive Date: 20080826
  Receipt Date: 20080818
  Transmission Date: 20090109
  Serious: Yes (Other)
  Sender: FDA-Public Use
  Company Number: SE-TEVA-176055ISR

PATIENT
  Sex: Male
  Weight: 96 kg

DRUGS (11)
  1. FLUOROURACIL [Suspect]
     Indication: COLORECTAL CANCER
     Dates: start: 20080421
  2. FLUOROURACIL [Suspect]
     Dates: start: 20080421
  3. FOLINIC ACID [Suspect]
     Indication: COLORECTAL CANCER
     Dates: start: 20080421
  4. IRINOTECAN HCL [Suspect]
     Indication: COLORECTAL CANCER
     Dates: start: 20080421
  5. SUNITINIB (BLINDED THERAPY) [Suspect]
     Indication: COLORECTAL CANCER
     Route: 048
     Dates: start: 20080421
  6. SPIRONOLACTONE [Concomitant]
     Dates: start: 20040721
  7. BENDROFLUMETHIAZIDE [Concomitant]
     Dates: start: 20040721
  8. ACETYLSALICYLIC ACID SRT [Concomitant]
     Dates: start: 20030101
  9. ATENOLOL [Concomitant]
     Dates: start: 20040721
  10. CITALOPRAM HYDROBROMIDE [Concomitant]
     Dates: start: 20070516
  11. OXAZEPAM [Concomitant]
     Dates: start: 20060801

REACTIONS (1)
  - PULMONARY EMBOLISM [None]
